FAERS Safety Report 6441853-5 (Version None)
Quarter: 2009Q4

REPORT INFORMATION
  Report Type: 
  Country: None (occurrence: None)
  Receive Date: 20091116
  Receipt Date: 20091109
  Transmission Date: 20100525
  Serious: Yes (Hospitalization)
  Sender: FDA-Public Use
  Company Number: IE-B.I. PHARMACEUTICALS,INC./RIDGEFIELD-2009-UK-00754UK

PATIENT
  Sex: Female

DRUGS (9)
  1. COMBIVENT [Suspect]
     Indication: EMPHYSEMA
     Dosage: 2.5MLS BD
     Route: 055
     Dates: start: 20090401
  2. COMBIVENT [Suspect]
     Dosage: 2.5MLS QID
     Route: 055
     Dates: end: 20090813
  3. SERETIDE [Concomitant]
     Indication: EMPHYSEMA
     Dosage: 1000 MCG
     Route: 055
     Dates: start: 20080501
  4. SPIRIVA [Concomitant]
     Indication: EMPHYSEMA
     Dosage: 18 MCG
     Route: 055
     Dates: start: 20080501
  5. SINGULAIR [Concomitant]
     Indication: EMPHYSEMA
     Dosage: 10 MG
     Route: 048
     Dates: start: 20090401
  6. LIPITOR [Concomitant]
     Indication: BLOOD CHOLESTEROL INCREASED
     Dosage: 20 MG
     Route: 048
     Dates: start: 20080401
  7. OSTEOFOS D3 [Concomitant]
     Indication: OSTEOPOROSIS PROPHYLAXIS
     Dosage: 1 SACHET ONCE DAILY
     Route: 048
     Dates: start: 20090201
  8. PROTIUM [Concomitant]
     Indication: DRUG ABUSE
     Dosage: 20 MG
     Route: 048
     Dates: start: 20080501
  9. XANAX [Concomitant]
     Indication: ANXIETY
     Dosage: 10 MG
     Route: 048
     Dates: start: 20081201

REACTIONS (3)
  - CHRONIC OBSTRUCTIVE PULMONARY DISEASE [None]
  - HYPOKALAEMIA [None]
  - RESPIRATORY FAILURE [None]
